FAERS Safety Report 10443785 (Version 1)
Quarter: 2014Q3

REPORT INFORMATION
  Report Type: Spontaneous
  Country: US (occurrence: None)
  Receive Date: 20140909
  Receipt Date: 20140909
  Transmission Date: 20150326
  Serious: Yes (Hospitalization)
  Sender: FDA-Public Use
  Company Number: None

PATIENT
  Age: 67 Year
  Sex: Female
  Weight: 56 kg

DRUGS (3)
  1. CISPLATIN. [Suspect]
     Active Substance: CISPLATIN
     Indication: NON-SMALL CELL LUNG CANCER
     Route: 042
     Dates: start: 20140627, end: 20140812
  2. PANOBINOSTAT [Suspect]
     Active Substance: PANOBINOSTAT
     Indication: NON-SMALL CELL LUNG CANCER
     Dosage: 10MG, PO, DAYS 1, 3, 5, 8, 10, 12
     Route: 048
  3. PEMETREXED [Suspect]
     Active Substance: PEMETREXED
     Indication: NON-SMALL CELL LUNG CANCER
     Route: 042
     Dates: start: 20140627, end: 20140812

REACTIONS (2)
  - Non-small cell lung cancer [None]
  - Small intestinal obstruction [None]

NARRATIVE: CASE EVENT DATE: 20140905
